FAERS Safety Report 24853270 (Version 1)
Quarter: 2025Q1

REPORT INFORMATION
  Report Type: Spontaneous
  Country: US (occurrence: US)
  Receive Date: 20250117
  Receipt Date: 20250117
  Transmission Date: 20250408
  Serious: Yes (Death, Hospitalization, Other)
  Sender: APOTEX
  Company Number: US-APOTEX-2025AP000230

PATIENT
  Age: 32 Year
  Sex: Female

DRUGS (10)
  1. GABAPENTIN [Suspect]
     Active Substance: GABAPENTIN
     Indication: Product used for unknown indication
     Route: 048
  2. GABAPENTIN [Suspect]
     Active Substance: GABAPENTIN
     Route: 051
  3. FENTANYL [Suspect]
     Active Substance: FENTANYL
     Indication: Product used for unknown indication
     Route: 048
  4. FENTANYL [Suspect]
     Active Substance: FENTANYL
     Route: 051
  5. METHAMPHETAMINE [Suspect]
     Active Substance: METHAMPHETAMINE
     Indication: Product used for unknown indication
     Route: 048
  6. METHAMPHETAMINE [Suspect]
     Active Substance: METHAMPHETAMINE
     Route: 051
  7. COCAINE [Suspect]
     Active Substance: COCAINE
     Indication: Product used for unknown indication
     Route: 048
  8. COCAINE [Suspect]
     Active Substance: COCAINE
     Route: 051
  9. AMPHETAMINE [Suspect]
     Active Substance: AMPHETAMINE
     Indication: Product used for unknown indication
     Route: 048
  10. AMPHETAMINE [Suspect]
     Active Substance: AMPHETAMINE
     Route: 051

REACTIONS (2)
  - Cardio-respiratory arrest [Fatal]
  - Death [Fatal]

NARRATIVE: CASE EVENT DATE: 20230101
